FAERS Safety Report 15472779 (Version 2)
Quarter: 2018Q4

REPORT INFORMATION
  Report Type: Spontaneous
  Country: US (occurrence: US)
  Receive Date: 20181008
  Receipt Date: 20181130
  Transmission Date: 20190205
  Serious: No
  Sender: FDA-Public Use
  Company Number: US-PFIZER INC-2018402247

PATIENT
  Age: 58 Year
  Sex: Male

DRUGS (7)
  1. ALFUZOSIN HCL [Interacting]
     Active Substance: ALFUZOSIN HYDROCHLORIDE
     Indication: PROSTATOMEGALY
     Dosage: 10 MG, UNK
     Dates: start: 2017
  2. VITAMIN D3 [Concomitant]
     Active Substance: CHOLECALCIFEROL
     Dosage: UNK UNK, 1X/DAY (DAILY IN AM)
     Dates: start: 2015
  3. AMILORIDE + HIDROCLOROTIAZIDA [Concomitant]
     Active Substance: AMILORIDE HYDROCHLORIDE\HYDROCHLOROTHIAZIDE
     Dosage: UNK (AMILORIDE HYDROCHLORIDE: 5 MG, HYDROCHLOROTHIAZIDE: 50 MG)
     Dates: start: 2014
  4. BABY ASPIRIN [Concomitant]
     Active Substance: ASPIRIN
     Dosage: UNK
     Dates: start: 2013
  5. COQ 10 [Concomitant]
     Active Substance: UBIDECARENONE
     Dosage: UNK
     Dates: start: 2016
  6. LIPITOR [Suspect]
     Active Substance: ATORVASTATIN CALCIUM
     Indication: BLOOD CHOLESTEROL DECREASED
     Dosage: 40 MG, 1X/DAY (DAILY BEDTIME)
     Dates: start: 2015
  7. OMEGA 3 [FISH OIL] [Concomitant]
     Dosage: UNK
     Dates: start: 2016

REACTIONS (2)
  - Drug interaction [Recovered/Resolved]
  - Headache [Recovered/Resolved]
